FAERS Safety Report 24563581 (Version 2)
Quarter: 2024Q4

REPORT INFORMATION
  Report Type: Other
  Country: CA (occurrence: CA)
  Receive Date: 20241030
  Receipt Date: 20241106
  Transmission Date: 20250114
  Serious: Yes (Death, Life-Threatening, Hospitalization, Disabling, Congenital Anomaly, Other)
  Sender: BIOCON
  Company Number: CA-BIOCON BIOLOGICS LIMITED-BBL2024007836

PATIENT

DRUGS (218)
  1. ADALIMUMAB [Suspect]
     Active Substance: ADALIMUMAB
     Indication: Rheumatoid arthritis
     Dosage: 40 MILLIGRAM, (SOLUTION)
     Route: 058
  2. ACETAMINOPHEN [Suspect]
     Active Substance: ACETAMINOPHEN
     Indication: Product used for unknown indication
     Dosage: UNK
     Route: 065
  3. AZATHIOPRINE [Suspect]
     Active Substance: AZATHIOPRINE
     Indication: Product used for unknown indication
     Dosage: UNK
     Route: 065
  4. COSENTYX [Suspect]
     Active Substance: SECUKINUMAB
     Indication: Product used for unknown indication
     Dosage: UNK
     Route: 065
  5. DICLOFENAC SODIUM [Suspect]
     Active Substance: DICLOFENAC SODIUM
     Indication: Product used for unknown indication
     Dosage: UNK
     Route: 065
  6. GOLD [Suspect]
     Active Substance: GOLD
     Indication: Product used for unknown indication
     Route: 065
  7. SIRUKUMAB [Suspect]
     Active Substance: SIRUKUMAB
     Indication: Product used for unknown indication
     Dosage: UNK
     Route: 065
  8. ACTEMRA [Suspect]
     Active Substance: TOCILIZUMAB
     Indication: Rheumatoid arthritis
     Dosage: 3011.2 MILLIGRAM
     Route: 040
  9. ACTEMRA [Suspect]
     Active Substance: TOCILIZUMAB
     Dosage: 80 MG/KG
     Route: 058
  10. ACTEMRA [Suspect]
     Active Substance: TOCILIZUMAB
     Dosage: 160 MILLIGRAM
     Route: 065
  11. ACTEMRA [Suspect]
     Active Substance: TOCILIZUMAB
     Dosage: 8 MG/KG
     Route: 042
  12. ACTEMRA [Suspect]
     Active Substance: TOCILIZUMAB
     Dosage: 25 MILLIGRAM, QW
     Route: 058
  13. ACTEMRA [Suspect]
     Active Substance: TOCILIZUMAB
     Dosage: 162 MILLIGRAM
     Route: 058
  14. ACTEMRA [Suspect]
     Active Substance: TOCILIZUMAB
     Dosage: 2912 MILLIGRAM
     Route: 040
  15. ACTEMRA [Suspect]
     Active Substance: TOCILIZUMAB
     Dosage: 8 MILLIGRAM
     Route: 042
  16. ACTEMRA [Suspect]
     Active Substance: TOCILIZUMAB
     Dosage: 8 MICROGRAM
     Route: 065
  17. ACTEMRA [Suspect]
     Active Substance: TOCILIZUMAB
     Dosage: 8 MG/KG
     Route: 058
  18. ACTEMRA [Suspect]
     Active Substance: TOCILIZUMAB
     Dosage: 752.8 MILLIGRAM
     Route: 040
  19. ACTEMRA [Suspect]
     Active Substance: TOCILIZUMAB
     Dosage: 20 MILLIGRAM
     Route: 065
  20. ACTEMRA [Suspect]
     Active Substance: TOCILIZUMAB
     Dosage: 728 MILLIGRAM
     Route: 040
  21. AIMOVIG [Suspect]
     Active Substance: ERENUMAB-AOOE
     Indication: Migraine
     Dosage: UNK
     Route: 065
  22. ALENDRONATE SODIUM [Suspect]
     Active Substance: ALENDRONATE SODIUM
     Indication: Product used for unknown indication
     Dosage: UNK
     Route: 065
  23. LEFLUNOMIDE [Suspect]
     Active Substance: LEFLUNOMIDE
     Indication: Rheumatoid arthritis
     Dosage: 10 MILLIGRAM
     Route: 048
  24. LEFLUNOMIDE [Suspect]
     Active Substance: LEFLUNOMIDE
     Dosage: UNK MILLIGRAM
     Route: 048
  25. LEFLUNOMIDE [Suspect]
     Active Substance: LEFLUNOMIDE
     Dosage: 20 MILLIGRAM
     Route: 048
  26. PREDNISONE [Suspect]
     Active Substance: PREDNISONE
     Indication: Rheumatoid arthritis
     Dosage: 1 DOSAGE FORMS, QD
     Route: 048
  27. PREDNISONE [Suspect]
     Active Substance: PREDNISONE
     Dosage: 5 MILLIGRAM
     Route: 048
  28. PREDNISONE [Suspect]
     Active Substance: PREDNISONE
     Dosage: 1 MILLIGRAM
     Route: 065
  29. PREDNISONE [Suspect]
     Active Substance: PREDNISONE
     Dosage: 1 MILLIGRAM
     Route: 065
  30. ARAVA [Suspect]
     Active Substance: LEFLUNOMIDE
     Indication: Rheumatoid arthritis
     Dosage: 20 MILLIGRAM, QD
     Route: 048
  31. CETIRIZINE [Suspect]
     Active Substance: CETIRIZINE HYDROCHLORIDE
     Indication: Rheumatoid arthritis
     Dosage: UNK
     Route: 048
  32. CETIRIZINE [Suspect]
     Active Substance: CETIRIZINE HYDROCHLORIDE
     Indication: Off label use
     Dosage: 25 MILLIGRAM
     Route: 048
  33. CETIRIZINE [Suspect]
     Active Substance: CETIRIZINE HYDROCHLORIDE
     Dosage: 25 MILLIGRAM
     Route: 048
  34. CETIRIZINE [Suspect]
     Active Substance: CETIRIZINE HYDROCHLORIDE
     Dosage: UNK
     Route: 065
  35. CHLORHEXIDINE GLUCONATE [Suspect]
     Active Substance: CHLORHEXIDINE GLUCONATE
     Indication: Product used for unknown indication
     Dosage: UNK
     Route: 002
  36. CIMZIA [Suspect]
     Active Substance: CERTOLIZUMAB PEGOL
     Indication: Rheumatoid arthritis
     Dosage: 200 MILLIGRAM
     Route: 058
  37. CIMZIA [Suspect]
     Active Substance: CERTOLIZUMAB PEGOL
     Indication: Rheumatoid arthritis
     Dosage: 200 MILLIGRAM
     Route: 058
  38. CORTISONE ACETATE [Suspect]
     Active Substance: CORTISONE ACETATE
     Indication: Product used for unknown indication
     Dosage: 25 MILLIGRAM
     Route: 065
  39. DESOXIMETASONE [Suspect]
     Active Substance: DESOXIMETASONE
     Indication: Rheumatoid arthritis
     Dosage: 25 MILLIGRAM
     Route: 048
  40. DESOXIMETASONE [Suspect]
     Active Substance: DESOXIMETASONE
     Dosage: UNK
     Route: 058
  41. ENBREL [Suspect]
     Active Substance: ETANERCEPT
     Indication: Rheumatoid arthritis
     Dosage: 50 MILLIGRAM
     Route: 058
  42. ENBREL [Suspect]
     Active Substance: ETANERCEPT
     Dosage: UNK MILLIGRAM
     Route: 065
  43. ENBREL [Suspect]
     Active Substance: ETANERCEPT
     Dosage: 10 MILLIGRAM, QW
     Route: 065
  44. ENBREL [Suspect]
     Active Substance: ETANERCEPT
     Dosage: 45 MILLIGRAM
     Route: 058
  45. ENBREL [Suspect]
     Active Substance: ETANERCEPT
     Dosage: 40 MILLIGRAM
     Route: 058
  46. ENBREL [Suspect]
     Active Substance: ETANERCEPT
     Dosage: 50 MILLIGRAM, QW
     Route: 058
  47. FOLIC ACID [Suspect]
     Active Substance: FOLIC ACID
     Indication: Product used for unknown indication
     Dosage: 15 MILLIGRAM
     Route: 048
  48. FOLIC ACID [Suspect]
     Active Substance: FOLIC ACID
     Dosage: 5 MILLIGRAM
     Route: 065
  49. FOLIC ACID [Suspect]
     Active Substance: FOLIC ACID
     Dosage: 500 MILLIGRAM
     Route: 048
  50. FOLIC ACID [Suspect]
     Active Substance: FOLIC ACID
     Dosage: 25 MILLIGRAM
     Route: 048
  51. FOLIC ACID [Suspect]
     Active Substance: FOLIC ACID
     Dosage: 1 MILLIGRAM
     Route: 058
  52. FOLIC ACID [Suspect]
     Active Substance: FOLIC ACID
     Dosage: 5 MILLIGRAM
     Route: 065
  53. FOLIC ACID [Suspect]
     Active Substance: FOLIC ACID
     Dosage: UNK
     Route: 065
  54. FOLIC ACID [Suspect]
     Active Substance: FOLIC ACID
     Dosage: 5 MILLIGRAM
     Route: 048
  55. FOSAMAX [Suspect]
     Active Substance: ALENDRONATE SODIUM
     Indication: Product used for unknown indication
     Dosage: UNK
     Route: 048
  56. HYDROCORTISONE [Suspect]
     Active Substance: HYDROCORTISONE
     Indication: Rheumatoid arthritis
     Dosage: 25 MILLIGRAM
     Route: 065
  57. HYDROXYCHLOROQUINE SULFATE [Suspect]
     Active Substance: HYDROXYCHLOROQUINE SULFATE
     Indication: Rheumatoid arthritis
     Dosage: UNK
     Route: 065
  58. HYDROXYCHLOROQUINE SULFATE [Suspect]
     Active Substance: HYDROXYCHLOROQUINE SULFATE
     Dosage: UNK
     Route: 048
  59. HYDROXYCHLOROQUINE SULFATE [Suspect]
     Active Substance: HYDROXYCHLOROQUINE SULFATE
     Dosage: 200 MILLIGRAM
     Route: 065
  60. HYDROXYCHLOROQUINE SULFATE [Suspect]
     Active Substance: HYDROXYCHLOROQUINE SULFATE
     Dosage: 400 MILLIGRAM, QD
     Route: 048
  61. HYDROXYCHLOROQUINE SULFATE [Suspect]
     Active Substance: HYDROXYCHLOROQUINE SULFATE
     Dosage: UNK
     Route: 048
  62. HYDROXYCHLOROQUINE SULFATE [Suspect]
     Active Substance: HYDROXYCHLOROQUINE SULFATE
     Dosage: UNK
     Route: 065
  63. INFLIXIMAB [Suspect]
     Active Substance: INFLIXIMAB
     Indication: Rheumatoid arthritis
     Dosage: 400 MILLIGRAM
     Route: 040
  64. LEFLUNOMIDE [Suspect]
     Active Substance: LEFLUNOMIDE
     Indication: Rheumatoid arthritis
     Dosage: 20 MILLIGRAM, QD
     Route: 065
  65. LEFLUNOMIDE [Suspect]
     Active Substance: LEFLUNOMIDE
     Indication: Rheumatoid arthritis
     Dosage: 10 MILLIGRAM, QD
     Route: 048
  66. CLIOQUINOL\FLUMETHASONE [Suspect]
     Active Substance: CLIOQUINOL\FLUMETHASONE
     Indication: Product used for unknown indication
     Dosage: UNK
     Route: 058
  67. METHOTREXATE [Suspect]
     Active Substance: METHOTREXATE
     Indication: Rheumatoid arthritis
     Dosage: 20 MILLIGRAM, QW
     Route: 058
  68. METHOTREXATE [Suspect]
     Active Substance: METHOTREXATE
     Indication: Rheumatoid arthritis
     Dosage: 15 MILLIGRAM, QW
     Route: 058
  69. METHOTREXATE [Suspect]
     Active Substance: METHOTREXATE
     Dosage: UNK
     Route: 048
  70. METHOTREXATE [Suspect]
     Active Substance: METHOTREXATE
     Dosage: 25 MILLIGRAM, QW
     Route: 058
  71. METHOTREXATE [Suspect]
     Active Substance: METHOTREXATE
     Dosage: 25 MILLIGRAM, QW
     Route: 048
  72. METHOTREXATE [Suspect]
     Active Substance: METHOTREXATE
     Dosage: 20 MILLIGRAM, QD
     Route: 048
  73. METHYLPREDNISOLONE [Suspect]
     Active Substance: METHYLPREDNISOLONE
     Indication: Product used for unknown indication
     Dosage: 80 MILLIGRAM
     Route: 065
  74. MINOCYCLINE [Suspect]
     Active Substance: MINOCYCLINE HYDROCHLORIDE
     Indication: Rheumatoid arthritis
     Dosage: UNK
     Route: 065
  75. MYOCHRYSINE [Suspect]
     Active Substance: GOLD SODIUM THIOMALATE
     Indication: Rheumatoid arthritis
     Dosage: UNK
     Route: 030
  76. ORENCIA [Suspect]
     Active Substance: ABATACEPT
     Indication: Rheumatoid arthritis
     Dosage: 125 MILLIGRAM, QW
     Route: 058
  77. ORENCIA [Suspect]
     Active Substance: ABATACEPT
     Dosage: 160 MILLIGRAM
     Route: 065
  78. ORENCIA [Suspect]
     Active Substance: ABATACEPT
     Dosage: 750 MILLIGRAM
     Route: 040
  79. ORENCIA [Suspect]
     Active Substance: ABATACEPT
     Dosage: 250 MILLIGRAM
     Route: 065
  80. ORENCIA [Suspect]
     Active Substance: ABATACEPT
     Dosage: 250 MILLIGRAM
     Route: 065
  81. ORENCIA [Suspect]
     Active Substance: ABATACEPT
     Dosage: 125 MILLIGRAM, QW
     Route: 058
  82. ORENCIA [Suspect]
     Active Substance: ABATACEPT
     Dosage: 385 MILLIGRAM
     Route: 040
  83. OTEZLA [Suspect]
     Active Substance: APREMILAST
     Indication: Rheumatoid arthritis
     Dosage: 6 MILLIGRAM, QD
     Route: 065
  84. PHTHALYLSULFATHIAZOLE [Suspect]
     Active Substance: PHTHALYLSULFATHIAZOLE
     Indication: Rheumatoid arthritis
     Dosage: 2000 MILLIGRAM, QD
     Route: 058
  85. PHTHALYLSULFATHIAZOLE [Suspect]
     Active Substance: PHTHALYLSULFATHIAZOLE
     Dosage: 500 MILLIGRAM
     Route: 048
  86. PHTHALYLSULFATHIAZOLE [Suspect]
     Active Substance: PHTHALYLSULFATHIAZOLE
     Dosage: 2000 MILLIGRAM, QD
     Route: 065
  87. PHTHALYLSULFATHIAZOLE [Suspect]
     Active Substance: PHTHALYLSULFATHIAZOLE
     Dosage: 2000 MILLIGRAM, QD
     Route: 048
  88. PHTHALYLSULFATHIAZOLE [Suspect]
     Active Substance: PHTHALYLSULFATHIAZOLE
     Dosage: 200 MILLIGRAM, QD
     Route: 048
  89. PHTHALYLSULFATHIAZOLE [Suspect]
     Active Substance: PHTHALYLSULFATHIAZOLE
     Dosage: 500 MILLIGRAM
     Route: 065
  90. PREDNISONE [Suspect]
     Active Substance: PREDNISONE
     Indication: Rheumatoid arthritis
     Dosage: 40 MILLIGRAM
     Route: 065
  91. PREDNISONE [Suspect]
     Active Substance: PREDNISONE
     Dosage: 5 MILLIGRAM
     Route: 065
  92. PREDNISONE [Suspect]
     Active Substance: PREDNISONE
     Dosage: 20 MILLIGRAM, QD
     Route: 048
  93. PREDNISONE [Suspect]
     Active Substance: PREDNISONE
     Dosage: 10 MILLIGRAM
     Route: 065
  94. PREDNISONE [Suspect]
     Active Substance: PREDNISONE
     Dosage: 50 MILLIGRAM, QD
     Route: 048
  95. PSEUDOEPHEDRINE [Suspect]
     Active Substance: PSEUDOEPHEDRINE
     Indication: Rheumatoid arthritis
     Dosage: UNK
     Route: 065
  96. PSEUDOEPHEDRINE [Suspect]
     Active Substance: PSEUDOEPHEDRINE
     Dosage: 1 MILLIGRAM
     Route: 065
  97. PSEUDOEPHEDRINE [Suspect]
     Active Substance: PSEUDOEPHEDRINE
     Dosage: 10 MILLIGRAM
     Route: 065
  98. PSEUDOEPHEDRINE [Suspect]
     Active Substance: PSEUDOEPHEDRINE
     Dosage: 25 MILLIGRAM
     Route: 065
  99. PSEUDOEPHEDRINE [Suspect]
     Active Substance: PSEUDOEPHEDRINE
     Dosage: UNK
     Route: 065
  100. REMICADE [Suspect]
     Active Substance: INFLIXIMAB
     Indication: Rheumatoid arthritis
     Dosage: UNK
     Route: 058
  101. REMICADE [Suspect]
     Active Substance: INFLIXIMAB
     Dosage: 500 MILLIGRAM, QD
     Route: 065
  102. REMICADE [Suspect]
     Active Substance: INFLIXIMAB
     Dosage: UNK
     Route: 040
  103. REMICADE [Suspect]
     Active Substance: INFLIXIMAB
     Dosage: UNK
     Route: 040
  104. REMICADE [Suspect]
     Active Substance: INFLIXIMAB
     Dosage: 365 MILLIGRAM
     Route: 040
  105. REMICADE [Suspect]
     Active Substance: INFLIXIMAB
     Dosage: UNK
     Route: 058
  106. REMICADE [Suspect]
     Active Substance: INFLIXIMAB
     Dosage: UNK
     Route: 043
  107. REMICADE [Suspect]
     Active Substance: INFLIXIMAB
     Dosage: UNK
     Route: 040
  108. REMICADE [Suspect]
     Active Substance: INFLIXIMAB
     Dosage: UNK
     Route: 058
  109. REMICADE [Suspect]
     Active Substance: INFLIXIMAB
     Dosage: 500 MILLIGRAM
     Route: 040
  110. REMICADE [Suspect]
     Active Substance: INFLIXIMAB
     Dosage: 500 MILLIGRAM
     Route: 040
  111. REMICADE [Suspect]
     Active Substance: INFLIXIMAB
     Dosage: UNK
     Route: 040
  112. REMICADE [Suspect]
     Active Substance: INFLIXIMAB
     Dosage: 2000 MILLIGRAM, QD
     Route: 040
  113. REMICADE [Suspect]
     Active Substance: INFLIXIMAB
     Dosage: UNK
     Route: 040
  114. REMICADE [Suspect]
     Active Substance: INFLIXIMAB
     Dosage: UNK
     Route: 043
  115. REMICADE [Suspect]
     Active Substance: INFLIXIMAB
     Indication: Rheumatoid arthritis
     Dosage: 2000 MILLIGRAM, QD (POWDER FOR SOLUTION)
     Route: 040
  116. RITUXIMAB [Suspect]
     Active Substance: RITUXIMAB
     Indication: Rheumatoid arthritis
     Dosage: 2000 MILLIGRAM, QD
     Route: 040
  117. RITUXIMAB [Suspect]
     Active Substance: RITUXIMAB
     Dosage: 2000 MILLIGRAM, QD
     Route: 040
  118. RITUXIMAB [Suspect]
     Active Substance: RITUXIMAB
     Dosage: 1 GRAM
     Route: 040
  119. RITUXIMAB [Suspect]
     Active Substance: RITUXIMAB
     Dosage: 2 GRAM, QD
     Route: 040
  120. RITUXIMAB [Suspect]
     Active Substance: RITUXIMAB
     Dosage: UNK
     Route: 043
  121. RITUXIMAB [Suspect]
     Active Substance: RITUXIMAB
     Dosage: UNK
     Route: 058
  122. RITUXIMAB [Suspect]
     Active Substance: RITUXIMAB
     Dosage: 2000 MILLIGRAM, QD
     Route: 040
  123. RITUXIMAB [Suspect]
     Active Substance: RITUXIMAB
     Dosage: 1000 MILLIGRAM
     Route: 040
  124. RITUXIMAB [Suspect]
     Active Substance: RITUXIMAB
     Dosage: 1 GRAM
     Route: 065
  125. RITUXIMAB [Suspect]
     Active Substance: RITUXIMAB
     Dosage: 2000 MILLIGRAM, QD
     Route: 040
  126. RITUXIMAB [Suspect]
     Active Substance: RITUXIMAB
     Dosage: UNK
     Route: 058
  127. RITUXIMAB [Suspect]
     Active Substance: RITUXIMAB
     Dosage: 365 MILLIGRAM
     Route: 065
  128. RITUXIMAB [Suspect]
     Active Substance: RITUXIMAB
     Dosage: 2000 MILLIGRAM, QD
     Route: 040
  129. RITUXIMAB [Suspect]
     Active Substance: RITUXIMAB
     Dosage: 2000 MILLIGRAM, QD
     Route: 040
  130. RITUXIMAB [Suspect]
     Active Substance: RITUXIMAB
     Dosage: 2 GRAM
     Route: 040
  131. RITUXIMAB [Suspect]
     Active Substance: RITUXIMAB
     Dosage: 2 GRAM, QD
     Route: 040
  132. RITUXIMAB [Suspect]
     Active Substance: RITUXIMAB
     Dosage: 1000 MILLIGRAM, QD
     Route: 040
  133. RITUXIMAB [Suspect]
     Active Substance: RITUXIMAB
     Dosage: 2000 MILLIGRAM, QD
     Route: 065
  134. RITUXIMAB [Suspect]
     Active Substance: RITUXIMAB
     Dosage: 2 GRAM
     Route: 040
  135. RITUXIMAB [Suspect]
     Active Substance: RITUXIMAB
     Dosage: 2 GRAM
     Route: 040
  136. RITUXIMAB [Suspect]
     Active Substance: RITUXIMAB
     Dosage: 2 GRAM, QD
     Route: 040
  137. RITUXIMAB [Suspect]
     Active Substance: RITUXIMAB
     Dosage: 1000 MILLIGRAM
     Route: 040
  138. RITUXIMAB [Suspect]
     Active Substance: RITUXIMAB
     Dosage: 1 GRAM
     Route: 040
  139. RITUXIMAB [Suspect]
     Active Substance: RITUXIMAB
     Dosage: 2 GRAM
     Route: 040
  140. RITUXIMAB [Suspect]
     Active Substance: RITUXIMAB
     Dosage: 2 GRAM, QD
     Route: 040
  141. RITUXIMAB [Suspect]
     Active Substance: RITUXIMAB
     Dosage: UNK
     Route: 058
  142. RITUXIMAB [Suspect]
     Active Substance: RITUXIMAB
     Dosage: 2000 MILLIGRAM, QD
     Route: 040
  143. RITUXIMAB [Suspect]
     Active Substance: RITUXIMAB
     Dosage: 2000 MILLIGRAM, QD
     Route: 065
  144. RITUXIMAB [Suspect]
     Active Substance: RITUXIMAB
     Dosage: UNK
     Route: 043
  145. RITUXIMAB [Suspect]
     Active Substance: RITUXIMAB
     Dosage: UNK
     Route: 043
  146. RITUXIMAB [Suspect]
     Active Substance: RITUXIMAB
     Dosage: UNK
     Route: 058
  147. RITUXIMAB [Suspect]
     Active Substance: RITUXIMAB
     Dosage: 365 MILLIGRAM
     Route: 065
  148. RITUXIMAB [Suspect]
     Active Substance: RITUXIMAB
     Dosage: 1 GRAM
     Route: 065
  149. RITUXIMAB [Suspect]
     Active Substance: RITUXIMAB
     Dosage: 2000 MILLIGRAM, QD
     Route: 040
  150. RITUXIMAB [Suspect]
     Active Substance: RITUXIMAB
     Dosage: 1000 MILLIGRAM, BID
     Route: 065
  151. RITUXIMAB [Suspect]
     Active Substance: RITUXIMAB
     Dosage: 1 GRAM, BID
     Route: 065
  152. RITUXIMAB [Suspect]
     Active Substance: RITUXIMAB
     Dosage: 1000 MILLIGRAM, BID
     Route: 065
  153. RITUXIMAB [Suspect]
     Active Substance: RITUXIMAB
     Dosage: 1000 MILLIGRAM, BID
     Route: 040
  154. RITUXIMAB [Suspect]
     Active Substance: RITUXIMAB
     Dosage: 1 GRAM, BID
     Route: 040
  155. RITUXIMAB [Suspect]
     Active Substance: RITUXIMAB
     Dosage: 1 GRAM, QD
     Route: 040
  156. RITUXIMAB [Suspect]
     Active Substance: RITUXIMAB
     Dosage: 1 GRAM, BID
     Route: 040
  157. RITUXIMAB [Suspect]
     Active Substance: RITUXIMAB
     Dosage: 1 GRAM, BID
     Route: 040
  158. RITUXIMAB [Suspect]
     Active Substance: RITUXIMAB
     Dosage: 1000 MILLIGRAM, BID
     Route: 040
  159. RITUXIMAB [Suspect]
     Active Substance: RITUXIMAB
     Dosage: 1 GRAM, BID
     Route: 040
  160. RITUXIMAB [Suspect]
     Active Substance: RITUXIMAB
     Indication: Rheumatoid arthritis
     Dosage: 1 GRAM
     Route: 040
  161. RITUXIMAB [Suspect]
     Active Substance: RITUXIMAB
     Dosage: 1 GRAM, BID
     Route: 040
  162. SULFASALAZINE [Suspect]
     Active Substance: SULFASALAZINE
     Indication: Rheumatoid arthritis
     Dosage: UNK
     Route: 065
  163. SIMPONI [Suspect]
     Active Substance: GOLIMUMAB
     Indication: Rheumatoid arthritis
     Dosage: 50 MILLIGRAM
     Route: 058
  164. GOLD SODIUM THIOMALATE [Suspect]
     Active Substance: GOLD SODIUM THIOMALATE
     Indication: Product used for unknown indication
     Dosage: UNK
     Route: 048
  165. SULFAMETHOXAZOLE\TRIMETHOPRIM [Suspect]
     Active Substance: SULFAMETHOXAZOLE\TRIMETHOPRIM
     Indication: Rheumatoid arthritis
     Dosage: 5 MILLIGRAM
     Route: 048
  166. SULFAMETHOXAZOLE\TRIMETHOPRIM [Suspect]
     Active Substance: SULFAMETHOXAZOLE\TRIMETHOPRIM
     Dosage: 10 MILLIGRAM, QD
     Route: 048
  167. SULFASALAZINE [Suspect]
     Active Substance: SULFASALAZINE
     Indication: Rheumatoid arthritis
     Dosage: 2 GRAM
     Route: 065
  168. SULFASALAZINE [Suspect]
     Active Substance: SULFASALAZINE
     Dosage: 2 GRAM, QD
     Route: 058
  169. SULFASALAZINE [Suspect]
     Active Substance: SULFASALAZINE
     Dosage: 1 GRAM
  170. SULFASALAZINE [Suspect]
     Active Substance: SULFASALAZINE
     Dosage: 500 MILLIGRAM
     Route: 048
  171. SULFASALAZINE [Suspect]
     Active Substance: SULFASALAZINE
     Dosage: 1 GRAM
     Route: 065
  172. SULFASALAZINE [Suspect]
     Active Substance: SULFASALAZINE
     Dosage: 100 MILLIGRAM
     Route: 048
  173. SULFASALAZINE [Suspect]
     Active Substance: SULFASALAZINE
     Dosage: 1 MILLIGRAM
     Route: 048
  174. SULFASALAZINE [Suspect]
     Active Substance: SULFASALAZINE
     Dosage: 300 MILLIGRAM, QD
     Route: 058
  175. SULFASALAZINE [Suspect]
     Active Substance: SULFASALAZINE
     Dosage: UNK
     Route: 065
  176. SULFASALAZINE [Suspect]
     Active Substance: SULFASALAZINE
     Dosage: 2000 MILLIGRAM, QD
     Route: 048
  177. SULFASALAZINE [Suspect]
     Active Substance: SULFASALAZINE
     Dosage: 2 DOSAGE FORMS, QD
     Route: 048
  178. SULFASALAZINE [Suspect]
     Active Substance: SULFASALAZINE
     Dosage: 1 MILLIGRAM
     Route: 048
  179. SULFASALAZINE [Suspect]
     Active Substance: SULFASALAZINE
     Dosage: 1000 MILLIGRAM, BID
     Route: 048
  180. SULFASALAZINE [Suspect]
     Active Substance: SULFASALAZINE
     Dosage: 2 GRAM, BID
     Route: 058
  181. SULFASALAZINE [Suspect]
     Active Substance: SULFASALAZINE
     Dosage: 1 DOSAGE FORMS, BID
     Route: 048
  182. TRAMADOL HYDROCHLORIDE [Suspect]
     Active Substance: TRAMADOL HYDROCHLORIDE
     Indication: Product used for unknown indication
     Dosage: 20 MILLIGRAM, QD
     Route: 065
  183. ACTEMRA [Suspect]
     Active Substance: TOCILIZUMAB
     Indication: Rheumatoid arthritis
     Dosage: 162.0 MILLIGRAM
     Route: 058
  184. ACTEMRA [Suspect]
     Active Substance: TOCILIZUMAB
     Dosage: 80.0 MG/KG
     Route: 058
  185. ACTEMRA [Suspect]
     Active Substance: TOCILIZUMAB
     Dosage: 25.0 MILLIGRAM
     Route: 058
  186. ACTEMRA [Suspect]
     Active Substance: TOCILIZUMAB
     Dosage: 20.0 MILLIGRAM
     Route: 065
  187. ACTEMRA [Suspect]
     Active Substance: TOCILIZUMAB
     Dosage: 728.0 MILLIGRAM
     Route: 040
  188. ACTEMRA [Suspect]
     Active Substance: TOCILIZUMAB
     Dosage: 2912.0 MILLIGRAM
     Route: 040
  189. ACTEMRA [Suspect]
     Active Substance: TOCILIZUMAB
     Dosage: 3011.2 MILLIGRAM
     Route: 040
  190. ACTEMRA [Suspect]
     Active Substance: TOCILIZUMAB
     Dosage: 8 MG/KG
     Route: 058
  191. ACTEMRA [Suspect]
     Active Substance: TOCILIZUMAB
     Dosage: 8 MICROGRAM
     Route: 065
  192. ACTEMRA [Suspect]
     Active Substance: TOCILIZUMAB
     Dosage: 8 MILLIGRAM
     Route: 042
  193. ACTEMRA [Suspect]
     Active Substance: TOCILIZUMAB
     Dosage: 8 MILLIGRAM
     Route: 042
  194. ACTEMRA [Suspect]
     Active Substance: TOCILIZUMAB
     Dosage: 160 MILLIGRAM
     Route: 065
  195. ERENUMAB-AOOE [Suspect]
     Active Substance: ERENUMAB-AOOE
     Indication: Migraine
     Dosage: UNK
     Route: 065
  196. METHOTREXATE SODIUM [Suspect]
     Active Substance: METHOTREXATE SODIUM
     Indication: Rheumatoid arthritis
     Dosage: 25 MILLIGRAM, QW
     Route: 048
  197. METHOTREXATE SODIUM [Suspect]
     Active Substance: METHOTREXATE SODIUM
     Dosage: 20 MILLIGRAM, QD
     Route: 048
  198. METHOTREXATE SODIUM [Suspect]
     Active Substance: METHOTREXATE SODIUM
     Dosage: UNK
     Route: 048
  199. METHOTREXATE SODIUM [Suspect]
     Active Substance: METHOTREXATE SODIUM
     Indication: Rheumatoid arthritis
     Dosage: 20 MILLIGRAM, QW
     Route: 058
  200. METHOTREXATE SODIUM [Suspect]
     Active Substance: METHOTREXATE SODIUM
     Dosage: 15 MILLIGRAM, QW
     Route: 058
  201. METHOTREXATE SODIUM [Suspect]
     Active Substance: METHOTREXATE SODIUM
     Dosage: 25 MILLIGRAM, QW
     Route: 058
  202. TRAMADOL HYDROCHLORIDE [Suspect]
     Active Substance: TRAMADOL HYDROCHLORIDE
     Indication: Product used for unknown indication
     Dosage: 20 MILLIGRAM, QD
     Route: 065
  203. XELJANZ [Suspect]
     Active Substance: TOFACITINIB CITRATE
     Indication: Rheumatoid arthritis
     Dosage: 240 MILLIGRAM
     Route: 065
  204. XELJANZ [Suspect]
     Active Substance: TOFACITINIB CITRATE
     Dosage: 10 MILLIGRAM
     Route: 048
  205. XELJANZ [Suspect]
     Active Substance: TOFACITINIB CITRATE
     Dosage: 5 MILLIGRAM
     Route: 048
  206. XELJANZ [Suspect]
     Active Substance: TOFACITINIB CITRATE
     Dosage: 10 MILLIGRAM, QD
     Route: 048
  207. XELJANZ [Suspect]
     Active Substance: TOFACITINIB CITRATE
     Dosage: 10 MILLIGRAM, QD
     Route: 048
  208. XELJANZ [Suspect]
     Active Substance: TOFACITINIB CITRATE
     Dosage: 10 MILLIGRAM, QD
     Route: 048
  209. XELJANZ [Suspect]
     Active Substance: TOFACITINIB CITRATE
     Dosage: 10 MILLIGRAM, QD
     Route: 048
  210. XELJANZ [Suspect]
     Active Substance: TOFACITINIB CITRATE
     Indication: Rheumatoid arthritis
     Dosage: 10 MILLIGRAM
     Route: 048
  211. XELJANZ [Suspect]
     Active Substance: TOFACITINIB CITRATE
     Dosage: 5 MILLIGRAM
     Route: 048
  212. XELJANZ [Suspect]
     Active Substance: TOFACITINIB CITRATE
     Dosage: 5 MILLIGRAM, BID
     Route: 048
  213. XELJANZ [Suspect]
     Active Substance: TOFACITINIB CITRATE
     Dosage: 10 MILLIGRAM, QD
     Route: 048
  214. XELJANZ [Suspect]
     Active Substance: TOFACITINIB CITRATE
     Dosage: 5 MILLIGRAM, BID
     Route: 048
  215. XELJANZ [Suspect]
     Active Substance: TOFACITINIB CITRATE
     Dosage: 5 MILLIGRAM, BID
     Route: 048
  216. DESOGESTREL\ETHINYL ESTRADIOL [Concomitant]
     Active Substance: DESOGESTREL\ETHINYL ESTRADIOL
     Indication: Product used for unknown indication
     Dosage: UNK
     Route: 065
  217. HYDROXYCHLOROQUINE [Concomitant]
     Active Substance: HYDROXYCHLOROQUINE
     Indication: Product used for unknown indication
     Dosage: UNK
     Route: 065
  218. NAPROXEN [Concomitant]
     Active Substance: NAPROXEN
     Indication: Product used for unknown indication
     Dosage: UNK
     Route: 065

REACTIONS (100)
  - Abdominal distension [Fatal]
  - Anti-cyclic citrullinated peptide antibody positive [Fatal]
  - Back injury [Fatal]
  - Blepharospasm [Fatal]
  - Blister [Fatal]
  - Blood cholesterol increased [Fatal]
  - Breast cancer stage III [Fatal]
  - Bursitis [Fatal]
  - C-reactive protein abnormal [Fatal]
  - Coeliac disease [Fatal]
  - Condition aggravated [Fatal]
  - Depression [Fatal]
  - Drug hypersensitivity [Fatal]
  - Drug-induced liver injury [Fatal]
  - Duodenal ulcer perforation [Fatal]
  - Epilepsy [Fatal]
  - Facet joint syndrome [Fatal]
  - Fall [Fatal]
  - Fibromyalgia [Fatal]
  - Finger deformity [Fatal]
  - Gait inability [Fatal]
  - Gastrooesophageal reflux disease [Fatal]
  - General physical health deterioration [Fatal]
  - Glossodynia [Fatal]
  - Grip strength decreased [Fatal]
  - Hand deformity [Fatal]
  - Helicobacter infection [Fatal]
  - Hypercholesterolaemia [Fatal]
  - Impaired healing [Fatal]
  - Inflammation [Fatal]
  - Infusion related reaction [Fatal]
  - Irritable bowel syndrome [Fatal]
  - Joint range of motion decreased [Fatal]
  - Lip dry [Fatal]
  - Live birth [Fatal]
  - Liver function test increased [Fatal]
  - Liver injury [Fatal]
  - Loss of personal independence in daily activities [Fatal]
  - Lung disorder [Fatal]
  - Memory impairment [Fatal]
  - Mobility decreased [Fatal]
  - Muscle injury [Fatal]
  - Nail disorder [Fatal]
  - Neck pain [Fatal]
  - Normal newborn [Fatal]
  - Obesity [Fatal]
  - Onychomadesis [Fatal]
  - Onychomycosis [Fatal]
  - Osteoarthritis [Fatal]
  - Pemphigus [Fatal]
  - Peripheral swelling [Fatal]
  - Psoriatic arthropathy [Fatal]
  - Rheumatic fever [Fatal]
  - Rheumatoid arthritis [Fatal]
  - Sleep disorder [Fatal]
  - Stomatitis [Fatal]
  - Synovitis [Fatal]
  - Abdominal discomfort [Fatal]
  - Arthropathy [Fatal]
  - Asthenia [Fatal]
  - C-reactive protein increased [Fatal]
  - Confusional state [Fatal]
  - Diarrhoea [Fatal]
  - Fatigue [Fatal]
  - Folliculitis [Fatal]
  - Hepatic enzyme increased [Fatal]
  - Hypoaesthesia [Fatal]
  - Joint swelling [Fatal]
  - Lower respiratory tract infection [Fatal]
  - Malaise [Fatal]
  - Muscular weakness [Fatal]
  - Musculoskeletal stiffness [Fatal]
  - Muscle spasms [Fatal]
  - Paraesthesia [Fatal]
  - Night sweats [Fatal]
  - Insomnia [Fatal]
  - Migraine [Fatal]
  - Hypersensitivity [Fatal]
  - Dyspepsia [Fatal]
  - Dry mouth [Fatal]
  - Pain in extremity [Fatal]
  - Pericarditis [Fatal]
  - Abdominal pain upper [Fatal]
  - Arthralgia [Fatal]
  - Systemic lupus erythematosus [Fatal]
  - Nasopharyngitis [Fatal]
  - Pain [Fatal]
  - Injury [Fatal]
  - Swelling [Fatal]
  - Rash [Fatal]
  - Pneumonia [Fatal]
  - Nausea [Fatal]
  - Injection site reaction [Fatal]
  - Hypertension [Fatal]
  - Hepatitis [Fatal]
  - Headache [Fatal]
  - Gastrointestinal disorder [Fatal]
  - Dizziness [Fatal]
  - Alopecia [Fatal]
  - Maternal exposure during pregnancy [Fatal]
